FAERS Safety Report 17160497 (Version 3)
Quarter: 2020Q3

REPORT INFORMATION
  Report Type: Report from Study
  Country: US (occurrence: US)
  Receive Date: 20191216
  Receipt Date: 20191231
  Transmission Date: 20201104
  Serious: Yes (Hospitalization, Other)
  Sender: FDA-Public Use
  Company Number: US-CELGENEUS-USA-20191203304

PATIENT
  Age: 53 Year
  Sex: Female
  Weight: 84.8 kg

DRUGS (18)
  1. HYDROCORTISONE. [Concomitant]
     Active Substance: HYDROCORTISONE
     Indication: PSORIASIS
     Dosage: 2.5 PERCENT
     Route: 061
     Dates: start: 20191023
  2. EUCERIN [Concomitant]
     Active Substance: ENSULIZOLE\EUCERIN\OCTINOXATE\OCTISALATE\TITANIUM DIOXIDE\ZINC OXIDE
     Indication: PSORIASIS
  3. NIZORAL [Concomitant]
     Active Substance: KETOCONAZOLE
     Indication: PSORIASIS
     Dosage: 1 DOSAGE FORMS
     Route: 061
     Dates: start: 20190507, end: 20191030
  4. T CELL SHAMPOO [Concomitant]
     Indication: PSORIASIS
     Dosage: 1 DOSAGE FORMS
     Route: 061
     Dates: start: 20190507
  5. DEUCRAVACITINIB HYDROCHLORIDE. [Suspect]
     Active Substance: DEUCRAVACITINIB HYDROCHLORIDE
     Indication: PSORIASIS
     Dosage: 1 DOSAGE FORMS
     Route: 048
     Dates: start: 20181120, end: 20191125
  6. FUROSEMIDE. [Concomitant]
     Active Substance: FUROSEMIDE
     Indication: HYPERTENSION
     Route: 048
     Dates: start: 20181001, end: 20190125
  7. JOHNSONS BABY SHAMPOO [Concomitant]
     Indication: THERAPEUTIC SKIN CARE TOPICAL
     Route: 061
     Dates: start: 20181105
  8. ATIVAN [Concomitant]
     Active Substance: LORAZEPAM
     Indication: HYPOKALAEMIA
     Dosage: 440 MILLIGRAM
     Route: 048
     Dates: start: 20191107
  9. CETAPHIL [Concomitant]
     Indication: THERAPEUTIC SKIN CARE TOPICAL
     Dosage: 1 DOSAGE FORMS
     Route: 061
     Dates: start: 20181101
  10. CETAPHIL [Concomitant]
     Indication: PSORIASIS
  11. FUROSEMIDE. [Concomitant]
     Active Substance: FUROSEMIDE
     Indication: OEDEMA PERIPHERAL
     Dosage: 20 MILLIGRAM
     Route: 048
     Dates: start: 20190930
  12. OTEZLA [Suspect]
     Active Substance: APREMILAST
     Indication: PSORIASIS
     Route: 048
     Dates: start: 20181120, end: 20191125
  13. TRIAMCINOLONE [Concomitant]
     Active Substance: TRIAMCINOLONE
     Indication: PSORIASIS
     Dosage: 2 DOSAGE FORMS
     Route: 061
     Dates: start: 20190604
  14. AQUAPHOR [Concomitant]
     Active Substance: PETROLATUM
     Indication: THERAPEUTIC SKIN CARE TOPICAL
     Route: 061
     Dates: start: 20190604
  15. ASPIRIN. [Concomitant]
     Active Substance: ASPIRIN
     Indication: CARDIOVASCULAR EVENT PROPHYLAXIS
     Dosage: 324 MILLIGRAM
     Route: 048
     Dates: start: 20191107, end: 20191107
  16. EUCERIN [Concomitant]
     Active Substance: ENSULIZOLE\EUCERIN\OCTINOXATE\OCTISALATE\TITANIUM DIOXIDE\ZINC OXIDE
     Indication: THERAPEUTIC SKIN CARE TOPICAL
     Dosage: 1 DOSAGE FORMS
     Route: 061
     Dates: start: 20181101
  17. NIVEA [Concomitant]
     Indication: THERAPEUTIC SKIN CARE TOPICAL
     Route: 061
     Dates: start: 20190408
  18. ABREVA [Concomitant]
     Active Substance: DOCOSANOL
     Indication: HERPES SIMPLEX
     Dosage: 1 DOSAGE FORMS
     Route: 061
     Dates: start: 20191123, end: 20191126

REACTIONS (2)
  - Pericardial effusion [Recovered/Resolved]
  - Acute respiratory failure [Recovered/Resolved]

NARRATIVE: CASE EVENT DATE: 20191107
